FAERS Safety Report 6836670-8 (Version None)
Quarter: 2010Q3

REPORT INFORMATION
  Report Type: 
  Country: None (occurrence: None)
  Receive Date: 20100713
  Receipt Date: 20100629
  Transmission Date: 20110219
  Serious: Yes (Other)
  Sender: FDA-Public Use
  Company Number: PHHY2010US39984

PATIENT
  Sex: Female
  Weight: 56.7 kg

DRUGS (1)
  1. EXJADE [Suspect]
     Dosage: 1000 MG, QD

REACTIONS (2)
  - DEMENTIA [None]
  - MALAISE [None]
